FAERS Safety Report 18330715 (Version 1)
Quarter: 2020Q3

REPORT INFORMATION
  Report Type: Spontaneous
  Country: GR (occurrence: GR)
  Receive Date: 20200930
  Receipt Date: 20200930
  Transmission Date: 20201103
  Serious: Yes (Death, Other)
  Sender: FDA-Public Use
  Company Number: GR-ADVANZ PHARMA-202009008938

PATIENT

DRUGS (3)
  1. GANCICLOVIR SODIUM. [Suspect]
     Active Substance: GANCICLOVIR SODIUM
     Indication: CYTOMEGALOVIRUS INFECTION
     Dosage: 10 MG/KG, QD
     Route: 042
  2. PREDNISOLONE. [Suspect]
     Active Substance: PREDNISOLONE
     Indication: CYTOMEGALOVIRUS INFECTION
     Dosage: 50 MG/KG FOR 10 DAYS
     Route: 065
  3. IMMUNOGLOBULIN IV [Suspect]
     Active Substance: HUMAN IMMUNOGLOBULIN G
     Indication: CYTOMEGALOVIRUS INFECTION
     Dosage: 0.4MG/KG FOR 5 DAYS
     Route: 041

REACTIONS (4)
  - Drug ineffective [Unknown]
  - Serratia infection [Fatal]
  - Bacterial sepsis [Fatal]
  - Febrile neutropenia [Unknown]
